FAERS Safety Report 8792267 (Version 2)
Quarter: 2015Q2

REPORT INFORMATION
  Report Type: Report from Study
  Country: US (occurrence: US)
  Receive Date: 20120917
  Receipt Date: 20150625
  Transmission Date: 20150821
  Serious: Yes (Death)
  Sender: FDA-Public Use
  Company Number: US-ROCHE-1129568

PATIENT
  Sex: Male

DRUGS (11)
  1. AVASTIN [Suspect]
     Active Substance: BEVACIZUMAB
     Indication: LUNG NEOPLASM MALIGNANT
     Dosage: 900
     Route: 042
  2. ARANESP [Concomitant]
     Active Substance: DARBEPOETIN ALFA
     Dosage: 400 (UNIT NOT REPORTED)
     Route: 065
  3. TAXOTERE [Concomitant]
     Active Substance: DOCETAXEL
  4. GEMZAR [Concomitant]
     Active Substance: GEMCITABINE HYDROCHLORIDE
     Dosage: 140, 150, 430, 200,175, 100 AND 300 (DOSE NOT REPORTED)
     Route: 065
  5. AVASTIN [Suspect]
     Active Substance: BEVACIZUMAB
     Indication: BLADDER CANCER
     Dosage: LAST DOSE PATIENT RECEIVED ON 23/NOV/2005
     Route: 042
  6. CISPLATIN. [Concomitant]
     Active Substance: CISPLATIN
  7. AVASTIN [Suspect]
     Active Substance: BEVACIZUMAB
     Dosage: 430
     Route: 042
  8. CARBOPLATIN. [Concomitant]
     Active Substance: CARBOPLATIN
     Dosage: 35, 40, 45, 75 AND 30 (UNIT NOT REPORTED)
     Route: 065
  9. GEMZAR [Concomitant]
     Active Substance: GEMCITABINE HYDROCHLORIDE
     Dosage: 150
     Route: 065
  10. SOLU-MEDROL [Concomitant]
     Active Substance: METHYLPREDNISOLONE SODIUM SUCCINATE
     Dosage: 30000, 400, 300 AND 200 (UNIT NOT REPORTED)
     Route: 065
  11. GEMZAR [Concomitant]
     Active Substance: GEMCITABINE HYDROCHLORIDE
     Dosage: 430
     Route: 065

REACTIONS (2)
  - Off label use [Unknown]
  - Death [Fatal]
